FAERS Safety Report 17518455 (Version 1)
Quarter: 2020Q1

REPORT INFORMATION
  Report Type: Report from Study
  Country: KR (occurrence: KR)
  Receive Date: 20200309
  Receipt Date: 20200309
  Transmission Date: 20200409
  Serious: Yes (Death, Hospitalization)
  Sender: FDA-Public Use
  Company Number: KR-AMGEN-KORNI2020021376

PATIENT
  Age: 57 Year
  Sex: Male
  Weight: 53.1 kg

DRUGS (17)
  1. LENALIDOMIDE [Suspect]
     Active Substance: LENALIDOMIDE
     Indication: PLASMA CELL MYELOMA
     Dosage: 525 MILLIGRAM
     Route: 065
     Dates: start: 20191115
  2. VACRAX [ACICLOVIR] [Concomitant]
     Dosage: 400 MILLIGRAM
     Dates: start: 20191015, end: 20200122
  3. LECTACIN [Concomitant]
     Dosage: 500 MILLIGRAM
     Dates: start: 20191114, end: 20200102
  4. CRESTOR [Concomitant]
     Active Substance: ROSUVASTATIN CALCIUM
     Dosage: 10 MILLIGRAM
     Dates: start: 20160202, end: 20200214
  5. FENTORA [Concomitant]
     Active Substance: FENTANYL CITRATE
     Dosage: 200 MICROGRAM
     Dates: start: 20170124, end: 20200216
  6. CONCOR [Concomitant]
     Active Substance: BISOPROLOL FUMARATE
     Dosage: 2.5 MILLIGRAM
     Dates: start: 20170309, end: 20200214
  7. CARFILZOMIB [Suspect]
     Active Substance: CARFILZOMIB
     Indication: PLASMA CELL MYELOMA
     Dosage: UNK
     Route: 042
     Dates: start: 20191115
  8. FLUCOZOLE [Concomitant]
     Dosage: 100 MILLIGRAM
     Dates: start: 20191015, end: 20200131
  9. MAGO [MAGNESIUM OXIDE] [Concomitant]
     Dosage: 250 MILLIGRAM
     Dates: start: 20191015, end: 20200124
  10. LYRICA [Concomitant]
     Active Substance: PREGABALIN
     Dosage: 75 MILLIGRAM
     Dates: start: 20191114, end: 20191213
  11. OPALMON [Concomitant]
     Active Substance: LIMAPROST
     Dosage: 5 MICROGRAM
     Dates: start: 20191114, end: 20200102
  12. SIGMART [Concomitant]
     Active Substance: NICORANDIL
     Dosage: 5 MILLIGRAM
     Dates: start: 20170403, end: 20200214
  13. GASMOTIN [Concomitant]
     Active Substance: MOSAPRIDE CITRATE
     Dosage: 5 MILLIGRAM
     Dates: start: 20191114, end: 20200212
  14. DEXAMETHASONE. [Suspect]
     Active Substance: DEXAMETHASONE
     Indication: PLASMA CELL MYELOMA
     Dosage: 40 MILLIGRAM
     Route: 065
     Dates: start: 20191115
  15. NEXIUM [Concomitant]
     Active Substance: ESOMEPRAZOLE MAGNESIUM
     Dosage: 20 MILLIGRAM
     Dates: start: 20191015, end: 20200203
  16. LASIX [Concomitant]
     Active Substance: FUROSEMIDE
     Dosage: 10-20 MILLIGRAM
     Dates: start: 20191115, end: 20200131
  17. ACELEX [CEFALEXIN] [Concomitant]
     Dosage: 2 MILLIGRAM
     Dates: start: 20191115, end: 20200102

REACTIONS (8)
  - Influenza [Unknown]
  - Neutrophil count decreased [Recovered/Resolved]
  - Constipation [Recovered/Resolved]
  - Hyperkalaemia [Recovered/Resolved]
  - Diarrhoea [Recovered/Resolved]
  - Pneumonia [Fatal]
  - Neutrophil count decreased [Recovered/Resolved]
  - Abdominal pain [Recovered/Resolved]

NARRATIVE: CASE EVENT DATE: 20191122
